FAERS Safety Report 8445462-8 (Version None)
Quarter: 2012Q2

REPORT INFORMATION
  Report Type: 
  Country: None (occurrence: None)
  Receive Date: 20120618
  Receipt Date: 20120209
  Transmission Date: 20120825
  Serious: No
  Sender: FDA-Public Use
  Company Number: US-TEVA-321991USA

PATIENT

DRUGS (1)
  1. FENTORA [Suspect]
     Route: 002

REACTIONS (1)
  - HEPATIC ENZYME INCREASED [None]
